FAERS Safety Report 10080383 (Version 2)
Quarter: 2014Q2

REPORT INFORMATION
  Report Type: Spontaneous
  Country: BR (occurrence: BR)
  Receive Date: 20140415
  Receipt Date: 20140429
  Transmission Date: 20141212
  Serious: Yes (Death)
  Sender: FDA-Public Use
  Company Number: BR-ROCHE-1380183

PATIENT
  Age: 4 Year
  Sex: 0

DRUGS (3)
  1. TOCILIZUMAB [Suspect]
     Indication: JUVENILE IDIOPATHIC ARTHRITIS
     Route: 065
     Dates: start: 2012
  2. PREDNISOLONE [Concomitant]
     Route: 065
  3. METHOTREXATE [Concomitant]

REACTIONS (5)
  - Hepatosplenomegaly [Fatal]
  - Pancytopenia [Fatal]
  - Jaundice [Fatal]
  - Serum ferritin increased [Fatal]
  - Urinary tract infection [Fatal]
